FAERS Safety Report 8935182 (Version 1)
Quarter: 2012Q4

REPORT INFORMATION
  Report Type: 
  Country: JP (occurrence: JP)
  Receive Date: 20121129
  Receipt Date: 20121129
  Transmission Date: 20130627
  Serious: Yes (Hospitalization)
  Sender: FDA-Public Use
  Company Number: JP-MERCK-1211JPN010665

PATIENT
  Age: 39 Year
  Sex: Female

DRUGS (11)
  1. REFLEX [Suspect]
     Indication: DEPRESSION
     Dosage: UNK
     Route: 048
     Dates: start: 2012
  2. REFLEX [Suspect]
     Dosage: 15 mg, qd
     Route: 048
     Dates: end: 20120612
  3. LAMICTAL [Suspect]
     Indication: PRODUCT USED FOR UNKNOWN INDICATION
     Dosage: UNK
     Route: 048
     Dates: start: 2012
  4. LAMICTAL [Suspect]
     Dosage: 200 mg, qd
     Route: 048
     Dates: end: 20120612
  5. PREDNISOLONE [Concomitant]
     Indication: PRODUCT USED FOR UNKNOWN INDICATION
     Dosage: 10 mg, qd
     Route: 048
     Dates: start: 20120608, end: 20120614
  6. PREDNISOLONE [Concomitant]
     Dosage: 30 mg, qd
     Route: 048
     Dates: start: 20120615, end: 20120712
  7. PREDNISOLONE [Concomitant]
     Dosage: 27 mg, qd
     Route: 048
     Dates: start: 20120713, end: 20120713
  8. PREDNISOLONE [Concomitant]
     Dosage: 24 mg, qd
     Route: 048
     Dates: start: 20120714, end: 20120724
  9. PREDNISOLONE [Concomitant]
     Dosage: 21 mg, qd
     Route: 048
     Dates: start: 20120725, end: 20120801
  10. PREDNISOLONE [Concomitant]
     Dosage: 18 mg, qd
     Route: 048
     Dates: start: 20120802, end: 20120810
  11. PREDNISOLONE [Concomitant]
     Dosage: 15 mg, qd
     Route: 048
     Dates: start: 20120811, end: 2012

REACTIONS (1)
  - Drug reaction with eosinophilia and systemic symptoms [Recovered/Resolved]
